FAERS Safety Report 6846951-X (Version None)
Quarter: 2010Q3

REPORT INFORMATION
  Report Type: 
  Country: None (occurrence: None)
  Receive Date: 20100713
  Receipt Date: 20100629
  Transmission Date: 20110219
  Serious: Yes (Hospitalization, Other)
  Sender: FDA-Public Use
  Company Number: 2010SCPR000870

PATIENT
  Age: 48 Year
  Sex: Female

DRUGS (1)
  1. IBUPROFEN [Suspect]
     Indication: TENDONITIS

REACTIONS (7)
  - DRUG RASH WITH EOSINOPHILIA AND SYSTEMIC SYMPTOMS [None]
  - DRUG RESISTANCE [None]
  - EPSTEIN-BARR VIRAEMIA [None]
  - HAEMODIALYSIS [None]
  - MYOCARDITIS [None]
  - RENAL FAILURE [None]
  - SUDDEN VISUAL LOSS [None]
